FAERS Safety Report 10495413 (Version 1)
Quarter: 2014Q4

REPORT INFORMATION
  Report Type: Spontaneous
  Country: US (occurrence: None)
  Receive Date: 20141001
  Receipt Date: 20141001
  Transmission Date: 20150528
  Serious: Yes (Other)
  Sender: FDA-Public Use
  Company Number: 201409-US-001561

PATIENT
  Age: 5 Year
  Sex: Female

DRUGS (2)
  1. FOUR UNKNOWN ASTHMA MEDICATIONS [Concomitant]
  2. FLEET (GLYCERIN) [Suspect]
     Active Substance: GLYCERIN
     Indication: CONSTIPATION
     Dosage: 1 IN 24 HOURS
     Route: 054
     Dates: start: 20140921, end: 20140921

REACTIONS (3)
  - Oropharyngeal pain [None]
  - Urticaria [None]
  - Hypersensitivity [None]

NARRATIVE: CASE EVENT DATE: 20140921
